FAERS Safety Report 7889730-7 (Version None)
Quarter: 2011Q4

REPORT INFORMATION
  Report Type: 
  Country: None (occurrence: None)
  Receive Date: 20111103
  Receipt Date: 20111027
  Transmission Date: 20120403
  Serious: Yes (Hospitalization)
  Sender: FDA-Public Use
  Company Number: GR-ABBOTT-11P-066-0869473-00

PATIENT
  Age: 43 Year
  Sex: Male
  Weight: 72 kg

DRUGS (9)
  1. NORVASC [Concomitant]
     Indication: HYPERTENSION
     Route: 048
     Dates: start: 20000101
  2. TACROLIMUS [Concomitant]
     Indication: RENAL TRANSPLANT
     Route: 048
     Dates: start: 19980101
  3. PREDNISOLONE [Concomitant]
     Indication: RENAL TRANSPLANT
     Route: 048
     Dates: start: 19980101
  4. SOTALOL HCL [Concomitant]
     Indication: HYPERTENSION
     Route: 048
     Dates: start: 20000101
  5. SOTALOL HCL [Concomitant]
     Indication: CORONARY ARTERY DISEASE
  6. SALOSPIR [Concomitant]
     Indication: CORONARY ARTERY DISEASE
     Route: 048
     Dates: start: 20000101
  7. ZEMPLAR [Suspect]
     Indication: HYPERPARATHYROIDISM SECONDARY
     Route: 048
     Dates: start: 20090826
  8. PLAVIX [Concomitant]
     Indication: CORONARY ARTERY DISEASE
     Route: 048
     Dates: start: 20000101
  9. MYFORTIC [Concomitant]
     Indication: RENAL TRANSPLANT
     Route: 048
     Dates: start: 19980101

REACTIONS (3)
  - PNEUMONIA [None]
  - PYREXIA [None]
  - DYSPNOEA [None]
